FAERS Safety Report 14673989 (Version 1)
Quarter: 2018Q1

REPORT INFORMATION
  Report Type: Spontaneous
  Country: SE (occurrence: SE)
  Receive Date: 20180323
  Receipt Date: 20180323
  Transmission Date: 20180509
  Serious: Yes (Other)
  Sender: FDA-Public Use
  Company Number: SE-ABBVIE-18P-150-2293935-00

PATIENT
  Sex: Female

DRUGS (6)
  1. LITAREX [Suspect]
     Active Substance: LITHIUM CITRATE
     Indication: SCHIZOAFFECTIVE DISORDER
     Route: 048
  2. ENALAPRIL [Concomitant]
     Active Substance: ENALAPRIL
     Indication: PRODUCT USED FOR UNKNOWN INDICATION
  3. MIRTAZAPINE. [Concomitant]
     Active Substance: MIRTAZAPINE
     Indication: PRODUCT USED FOR UNKNOWN INDICATION
  4. ERGENYL RETARD [Suspect]
     Active Substance: VALPROIC ACID
     Indication: SCHIZOAFFECTIVE DISORDER
     Dosage: 100MG TABLET ONCE DAILY
     Route: 048
  5. PROPAVAN [Concomitant]
     Active Substance: PROPIOMAZINE
     Indication: PRODUCT USED FOR UNKNOWN INDICATION
  6. QUETIAPINE FUMARATE. [Suspect]
     Active Substance: QUETIAPINE FUMARATE
     Indication: SCHIZOAFFECTIVE DISORDER
     Route: 048

REACTIONS (2)
  - Gait disturbance [Not Recovered/Not Resolved]
  - Tremor [Not Recovered/Not Resolved]
